FAERS Safety Report 9778677 (Version 1)
Quarter: 2013Q4

REPORT INFORMATION
  Report Type: Spontaneous
  Country: TR (occurrence: TR)
  Receive Date: 20131223
  Receipt Date: 20131223
  Transmission Date: 20140711
  Serious: Yes (Other)
  Sender: FDA-Public Use
  Company Number: TR-MYLANLABS-2013S1028252

PATIENT
  Sex: 0

DRUGS (1)
  1. FLUOXETINE [Suspect]
     Route: 065

REACTIONS (2)
  - Mania [Unknown]
  - Drug withdrawal syndrome [Unknown]
